FAERS Safety Report 16875934 (Version 1)
Quarter: 2019Q4

REPORT INFORMATION
  Report Type: Spontaneous
  Country: US (occurrence: US)
  Receive Date: 20191001
  Receipt Date: 20191001
  Transmission Date: 20200122
  Serious: Yes (Other)
  Sender: FDA-Public Use
  Company Number: None

PATIENT
  Age: 55 Year
  Sex: Female
  Weight: 99 kg

DRUGS (1)
  1. GILENYA [Suspect]
     Active Substance: FINGOLIMOD HYDROCHLORIDE
     Indication: MULTIPLE SCLEROSIS
     Dates: start: 20190827, end: 20190913

REACTIONS (7)
  - Therapy cessation [None]
  - Cardiac disorder [None]
  - Fatigue [None]
  - Dysstasia [None]
  - Vision blurred [None]
  - Chest pain [None]
  - Abdominal pain [None]

NARRATIVE: CASE EVENT DATE: 20190913
